FAERS Safety Report 10382470 (Version 6)
Quarter: 2014Q4

REPORT INFORMATION
  Report Type: Report from Study
  Country: US (occurrence: US)
  Receive Date: 20140813
  Receipt Date: 20141030
  Transmission Date: 20150528
  Serious: Yes (Hospitalization, Other)
  Sender: FDA-Public Use
  Company Number: US-ALEXION-A201305540

PATIENT

DRUGS (3)
  1. SOLIRIS [Suspect]
     Active Substance: ECULIZUMAB
     Indication: HAEMOLYTIC URAEMIC SYNDROME
     Dosage: UNK
     Route: 042
  2. SOLIRIS [Suspect]
     Active Substance: ECULIZUMAB
     Indication: PAROXYSMAL NOCTURNAL HAEMOGLOBINURIA
     Dosage: UNK
     Route: 042
  3. IMMUNOSUPPRESSANTS [Concomitant]
     Active Substance: UNSPECIFIED INGREDIENT
     Indication: PRODUCT USED FOR UNKNOWN INDICATION
     Route: 065

REACTIONS (16)
  - Fatigue [Unknown]
  - Blood urea increased [Unknown]
  - Pyrexia [Unknown]
  - Blood creatinine increased [Not Recovered/Not Resolved]
  - Blood lactate dehydrogenase increased [Recovered/Resolved]
  - White blood cell count decreased [Unknown]
  - Arthralgia [Unknown]
  - Sinusitis [Not Recovered/Not Resolved]
  - Haemoglobin decreased [Recovering/Resolving]
  - Dehydration [Unknown]
  - Blood creatinine increased [Not Recovered/Not Resolved]
  - Nasal polyps [Unknown]
  - Platelet count increased [Unknown]
  - Tenderness [Unknown]
  - Epistaxis [Unknown]
  - Transplant rejection [Not Recovered/Not Resolved]

NARRATIVE: CASE EVENT DATE: 20131110
